FAERS Safety Report 8341185 (Version 3)
Quarter: 2013Q1

REPORT INFORMATION
  Report Type: Report from Study
  Country: GR (occurrence: GR)
  Receive Date: 20120118
  Receipt Date: 20130130
  Transmission Date: 20140127
  Serious: Yes (Death, Life-Threatening, Hospitalization)
  Sender: FDA-Public Use
  Company Number: GR-SANOFI-AVENTIS-2011SA027421

PATIENT
  Age: 71 Year
  Sex: Male
  Weight: 77 kg

DRUGS (11)
  1. CABAZITAXEL [Suspect]
     Indication: PROSTATE CANCER
     Route: 042
     Dates: start: 20110414, end: 20110414
  2. PREDNISOLONE [Suspect]
     Indication: PROSTATE CANCER
     Route: 048
  3. CERTICAN [Concomitant]
  4. PRADIF [Concomitant]
  5. ONE-ALPHA [Concomitant]
  6. MEGA-CALCIUM [Concomitant]
  7. MAGNESIUM [Concomitant]
  8. RESOFERON [Concomitant]
  9. ARANESP [Concomitant]
  10. MEDROL [Concomitant]
  11. ESOMEPRAZOLE [Concomitant]

REACTIONS (3)
  - Pancytopenia [Recovering/Resolving]
  - Renal failure [Fatal]
  - Pulmonary oedema [Fatal]
